FAERS Safety Report 17865387 (Version 1)
Quarter: 2020Q2

REPORT INFORMATION
  Report Type: Spontaneous
  Country: FR (occurrence: FR)
  Receive Date: 20200605
  Receipt Date: 20200605
  Transmission Date: 20200714
  Serious: Yes (Other)
  Sender: FDA-Public Use
  Company Number: NVSC2020FR155446

PATIENT
  Age: 35 Year
  Sex: Male

DRUGS (3)
  1. THERALENE [Suspect]
     Active Substance: TRIMEPRAZINE
     Indication: DEPENDENCE
     Dosage: SI BESOIN
     Route: 048
  2. QUETIAPINE. [Suspect]
     Active Substance: QUETIAPINE
     Indication: DEPENDENCE
     Dosage: 50 MG, QD
     Route: 048
  3. DEPAKOTE [Suspect]
     Active Substance: DIVALPROEX SODIUM
     Indication: DEPENDENCE
     Dosage: 1000 MG, QD
     Route: 048

REACTIONS (1)
  - Erectile dysfunction [Not Recovered/Not Resolved]

NARRATIVE: CASE EVENT DATE: 202001
